FAERS Safety Report 9462744 (Version 1)
Quarter: 2013Q3

REPORT INFORMATION
  Report Type: Spontaneous
  Country: GB (occurrence: None)
  Receive Date: 20130814
  Receipt Date: 20130814
  Transmission Date: 20140515
  Serious: Yes (Hospitalization)
  Sender: FDA-Public Use
  Company Number: AUR-APL-2013-06606

PATIENT
  Age: 45 Year
  Sex: Female
  Weight: 70.76 kg

DRUGS (1)
  1. ESCITALOPRAM [Suspect]
     Indication: DEPRESSIVE SYMPTOM
     Route: 048
     Dates: start: 20130705, end: 20130723

REACTIONS (13)
  - Insomnia [None]
  - Panic attack [None]
  - Blood pressure increased [None]
  - Palpitations [None]
  - Nausea [None]
  - Abdominal discomfort [None]
  - Tremor [None]
  - Tremor [None]
  - Akathisia [None]
  - Restlessness [None]
  - Suicidal ideation [None]
  - Weight decreased [None]
  - Fall [None]
